FAERS Safety Report 14390342 (Version 1)
Quarter: 2018Q1

REPORT INFORMATION
  Report Type: Report from Study
  Country: IE (occurrence: IE)
  Receive Date: 20180116
  Receipt Date: 20180116
  Transmission Date: 20180509
  Serious: Yes (Death)
  Sender: FDA-Public Use
  Company Number: IE-ROCHE-2055393

PATIENT
  Sex: Female

DRUGS (2)
  1. VENETOCLAX. [Suspect]
     Active Substance: VENETOCLAX
     Indication: CHRONIC LYMPHOCYTIC LEUKAEMIA
     Dosage: DOSE AS PER PROTOCOL: CYCLE 1: ORAL 20 MG (2 TABL. AT 10 MG), D22-28, Q28D, CYCLE 2: 50 MG (1 TABL.
     Route: 048
     Dates: start: 20171011
  2. RITUXIMAB. [Suspect]
     Active Substance: RITUXIMAB
     Indication: CHRONIC LYMPHOCYTIC LEUKAEMIA
     Dosage: DOSE AS PER PROTOCOL: RITUXIMAB I.V. (BEFORE CHEMOTHERAPY): CYCLE 1: 375 MG/M2, D0; CYCLES 2-6: 500
     Route: 042
     Dates: start: 20170920

REACTIONS (1)
  - Completed suicide [Fatal]

NARRATIVE: CASE EVENT DATE: 20180111
